FAERS Safety Report 7124920-2 (Version None)
Quarter: 2010Q4

REPORT INFORMATION
  Report Type: 
  Country: None (occurrence: None)
  Receive Date: 20101129
  Receipt Date: 20101125
  Transmission Date: 20110411
  Serious: Yes (Death)
  Sender: FDA-Public Use
  Company Number: BR-PFIZER INC-2010152235

PATIENT
  Age: 54 Year
  Sex: Female

DRUGS (3)
  1. DIABINESE [Suspect]
     Indication: DIABETES MELLITUS
     Dosage: 250 MG, 1X/DAY
     Route: 048
  2. NPH INSULIN [Concomitant]
     Indication: DIABETES MELLITUS
     Dosage: 36 IU, 1X/DAY
  3. SUSTRATE [Concomitant]
     Indication: CARDIAC DISORDER

REACTIONS (1)
  - INFARCTION [None]
